FAERS Safety Report 10171128 (Version 1)
Quarter: 2014Q2

REPORT INFORMATION
  Report Type: Spontaneous
  Country: US (occurrence: None)
  Receive Date: 20140513
  Receipt Date: 20140513
  Transmission Date: 20141212
  Serious: Yes (Other)
  Sender: FDA-Public Use
  Company Number: None

PATIENT
  Sex: Male
  Weight: 75 kg

DRUGS (3)
  1. AXONA [Suspect]
     Indication: MEMORY IMPAIRMENT
     Route: 048
     Dates: start: 201307
  2. OXYCODONE [Suspect]
     Indication: PAIN
     Dates: start: 201403
  3. FENTANYL PATCH [Suspect]
     Indication: PAIN
     Route: 062
     Dates: start: 201403

REACTIONS (6)
  - Metastases to bone [None]
  - Decreased appetite [None]
  - Diarrhoea [None]
  - Faeces discoloured [None]
  - Confusional state [None]
  - Memory impairment [None]
